FAERS Safety Report 13096681 (Version 1)
Quarter: 2017Q1

REPORT INFORMATION
  Report Type: Spontaneous
  Country: GB (occurrence: GB)
  Receive Date: 20170109
  Receipt Date: 20170109
  Transmission Date: 20170428
  Serious: Yes (Other)
  Sender: FDA-Public Use
  Company Number: GB-009507513-1701GBR003352

PATIENT
  Age: 70 Year
  Sex: Female

DRUGS (8)
  1. LAXIDO [Concomitant]
     Active Substance: POLYETHYLENE GLYCOL 3350\POTASSIUM CHLORIDE\SODIUM BICARBONATE\SODIUM CHLORIDE
     Indication: CONSTIPATION
     Dosage: 1-3 SACHETS DAILY IN DIVIDED DOSES.
     Route: 048
  2. EPIPEN [Concomitant]
     Active Substance: EPINEPHRINE
     Indication: ANGIOEDEMA
     Dosage: USE AS DIRECTED
  3. NITROGLYCERIN. [Concomitant]
     Active Substance: NITROGLYCERIN
     Indication: ANGINA PECTORIS
     Dosage: 400MICROGRAMS/DOSE- ONE TO TWO SPRAYS UNDER THE TONGUE
     Route: 060
  4. ATENOLOL. [Concomitant]
     Active Substance: ATENOLOL
     Indication: ESSENTIAL HYPERTENSION
     Dosage: 25 MG, QD
     Route: 048
  5. ALISKIREN [Concomitant]
     Active Substance: ALISKIREN
     Indication: ESSENTIAL HYPERTENSION
     Dosage: 300 MG, QD
     Route: 048
  6. ALLOPURINOL. [Concomitant]
     Active Substance: ALLOPURINOL
     Indication: GOUT
     Dosage: 100 MG, UNK
     Route: 048
  7. SITAGLIPTIN PHOSPHATE [Suspect]
     Active Substance: SITAGLIPTIN PHOSPHATE
     Indication: TYPE 2 DIABETES MELLITUS
     Dosage: 100 MG, QD
     Route: 048
     Dates: start: 20140228
  8. DAPAGLIFLOZIN [Concomitant]
     Active Substance: DAPAGLIFLOZIN
     Indication: TYPE 2 DIABETES MELLITUS
     Dosage: 10 MG, QD
     Route: 048

REACTIONS (1)
  - Neuroendocrine tumour [Unknown]

NARRATIVE: CASE EVENT DATE: 20161201
